FAERS Safety Report 25526596 (Version 1)
Quarter: 2025Q3

REPORT INFORMATION
  Report Type: Spontaneous
  Country: US (occurrence: US)
  Receive Date: 20250707
  Receipt Date: 20250707
  Transmission Date: 20251021
  Serious: Yes (Hospitalization)
  Sender: I-HEALTH
  Company Number: US-i-Health, Inc.-2180070

PATIENT
  Sex: Female

DRUGS (1)
  1. AZO YEAST PLUS [Suspect]
     Active Substance: HOMEOPATHICS
     Indication: Fungal infection

REACTIONS (1)
  - Haematemesis [Unknown]
